FAERS Safety Report 7602100-1 (Version None)
Quarter: 2011Q3

REPORT INFORMATION
  Report Type: 
  Country: None (occurrence: None)
  Receive Date: 20110711
  Receipt Date: 20081114
  Transmission Date: 20111222
  Serious: Yes (Other)
  Sender: FDA-Public Use
  Company Number: US-BAYER-200717194NA

PATIENT
  Age: 48 Year
  Sex: Female
  Weight: 107.94 kg

DRUGS (21)
  1. OMNISCAN [Suspect]
  2. DEMEDEX [Concomitant]
  3. LIPITOR [Concomitant]
  4. XANAX [Concomitant]
  5. MAGNEVIST [Suspect]
     Dosage: UNK UNK, ONCE
     Route: 042
     Dates: start: 20050818, end: 20050818
  6. LOPID [Concomitant]
  7. OPTIMARK [Suspect]
  8. SYNTHROID [Concomitant]
  9. AMBIEN [Concomitant]
  10. NITRO-DUR [Concomitant]
  11. MAGNEVIST [Suspect]
     Indication: NUCLEAR MAGNETIC RESONANCE IMAGING
     Dosage: UNK UNK, ONCE
     Route: 042
     Dates: start: 20040229, end: 20040229
  12. NORVASC [Concomitant]
  13. FLEXERIL [Concomitant]
  14. PROHANCE [Suspect]
  15. IMDUR [Concomitant]
  16. ESTROGENIC SUBSTANCE [Concomitant]
  17. MAGNEVIST [Suspect]
     Dosage: UNK UNK, ONCE
     Route: 042
     Dates: start: 20040516, end: 20040516
  18. MAGNEVIST [Suspect]
     Dosage: UNK UNK, ONCE
     Route: 042
     Dates: start: 20040913, end: 20040913
  19. MULTIHANCE [Suspect]
  20. CELEXA [Concomitant]
  21. FUROSEMIDE [Concomitant]

REACTIONS (15)
  - MUSCLE SWELLING [None]
  - GAIT DISTURBANCE [None]
  - DEPRESSION [None]
  - MUSCULOSKELETAL STIFFNESS [None]
  - SKIN DISORDER [None]
  - MUSCLE TIGHTNESS [None]
  - MOBILITY DECREASED [None]
  - NEPHROGENIC SYSTEMIC FIBROSIS [None]
  - JOINT SWELLING [None]
  - PAIN IN EXTREMITY [None]
  - JOINT STIFFNESS [None]
  - SKIN TIGHTNESS [None]
  - SCAR [None]
  - SKIN SWELLING [None]
  - BONE PAIN [None]
